FAERS Safety Report 16071699 (Version 1)
Quarter: 2019Q1

REPORT INFORMATION
  Report Type: Spontaneous
  Country: CH (occurrence: CH)
  Receive Date: 20190314
  Receipt Date: 20190314
  Transmission Date: 20190418
  Serious: Yes (Hospitalization, Other)
  Sender: FDA-Public Use
  Company Number: CH-UCBSA-2019009413

PATIENT
  Age: 2 Year
  Sex: Female

DRUGS (10)
  1. BEN-U-RON [Suspect]
     Active Substance: ACETAMINOPHEN
     Indication: INFLUENZA
     Dosage: 200 MG, 4X/DAY (QID)
     Dates: start: 20190129, end: 20190130
  2. KEPPRA [Suspect]
     Active Substance: LEVETIRACETAM
     Indication: INFLUENZA
     Dosage: 210 MG, 2X/DAY (BID)
     Route: 048
     Dates: start: 20190121, end: 20190126
  3. TAMIFLU [Suspect]
     Active Substance: OSELTAMIVIR PHOSPHATE
     Indication: INFLUENZA
     Dosage: 300 MG, 2X/DAY (BID)
     Route: 042
     Dates: start: 20190129, end: 20190130
  4. NEXIUM [Concomitant]
     Active Substance: ESOMEPRAZOLE MAGNESIUM
     Indication: PRODUCT USED FOR UNKNOWN INDICATION
     Dosage: 10 MG, 2X/DAY (BID)
  5. KEPPRA [Suspect]
     Active Substance: LEVETIRACETAM
     Indication: OFF LABEL USE
     Dosage: 210 MG, 2X/DAY (BID)
     Route: 048
     Dates: start: 20190128, end: 20190129
  6. CEFUROXIM [Suspect]
     Active Substance: CEFUROXIME
     Indication: INFLUENZA
     Dosage: 500 MG, 3X/DAY (TID)
     Route: 042
     Dates: start: 20190129, end: 20190130
  7. SOLU-MEDROL [Concomitant]
     Active Substance: METHYLPREDNISOLONE SODIUM SUCCINATE
     Indication: PRODUCT USED FOR UNKNOWN INDICATION
     Dosage: 20 MG, 4X/DAY (QID)
     Route: 042
     Dates: start: 20190129, end: 20190131
  8. NUTRIENTS NOS [Concomitant]
     Active Substance: UNSPECIFIED INGREDIENT
     Indication: PRODUCT USED FOR UNKNOWN INDICATION
  9. COLECALCIFEROL [Concomitant]
     Active Substance: CHOLECALCIFEROL
     Indication: PRODUCT USED FOR UNKNOWN INDICATION
  10. EUTHYROX [Concomitant]
     Active Substance: LEVOTHYROXINE SODIUM
     Indication: PRODUCT USED FOR UNKNOWN INDICATION
     Dosage: 37.5 ?G DAILY

REACTIONS (4)
  - Hepatitis [Recovering/Resolving]
  - Off label use [Unknown]
  - Enterocolitis haemorrhagic [Recovering/Resolving]
  - Acute hepatic failure [Recovering/Resolving]

NARRATIVE: CASE EVENT DATE: 20190121
